FAERS Safety Report 18260708 (Version 1)
Quarter: 2020Q3

REPORT INFORMATION
  Report Type: Spontaneous
  Country: US (occurrence: US)
  Receive Date: 20200914
  Receipt Date: 20200914
  Transmission Date: 20201103
  Serious: No
  Sender: FDA-Public Use
  Company Number: US-ASTRAZENECA-2020SF13628

PATIENT
  Sex: Female
  Weight: 63.5 kg

DRUGS (2)
  1. TRULICITY [Concomitant]
     Active Substance: DULAGLUTIDE
  2. BYDUREON BCISE [Suspect]
     Active Substance: EXENATIDE
     Indication: DIABETES MELLITUS
     Route: 058
     Dates: start: 2020, end: 2020

REACTIONS (12)
  - Feeling abnormal [Unknown]
  - Alopecia [Unknown]
  - Weight increased [Unknown]
  - Vomiting [Unknown]
  - Diabetes mellitus [Unknown]
  - Constipation [Unknown]
  - Vision blurred [Unknown]
  - Stress [Unknown]
  - Abdominal pain upper [Unknown]
  - Blood glucose abnormal [Unknown]
  - Injection site nodule [Unknown]
  - Flatulence [Unknown]
